FAERS Safety Report 18333634 (Version 1)
Quarter: 2020Q3

REPORT INFORMATION
  Report Type: Spontaneous
  Country: US (occurrence: US)
  Receive Date: 20200930
  Receipt Date: 20200930
  Transmission Date: 20201103
  Serious: Yes (Death)
  Sender: FDA-Public Use
  Company Number: None

PATIENT
  Age: 46 Year
  Sex: Male
  Weight: 198 kg

DRUGS (15)
  1. MEROPENEM 500 MG IV Q12HR [Concomitant]
     Dates: start: 20200729, end: 20200731
  2. DEXAMETHASONE 6 MG IV ONCE DAILY [Concomitant]
     Dates: start: 20200714, end: 20200723
  3. AZITHROMYCIN 500 MG IV/PO [Concomitant]
     Dates: start: 20200714, end: 20200918
  4. CEFTRIAXONE 2 GM IV ONCE DAILY [Concomitant]
     Dates: start: 20200714, end: 20200716
  5. AMIODARONE IV DRIP [Concomitant]
     Active Substance: AMIODARONE
     Dates: start: 20200727, end: 20200730
  6. GABAPENTIN 600 MG PO BID [Concomitant]
     Dates: start: 20200721, end: 20200731
  7. MICAFUNGIN 100 MG IV ONCE DAILY [Concomitant]
     Dates: start: 20200729, end: 20200731
  8. CONVALESCENT PLASMA [Concomitant]
     Active Substance: HUMAN PLASMA
     Dates: start: 20200715, end: 20200715
  9. CEFEPIME 1 GM IV Q8HR [Concomitant]
     Dates: start: 20200719, end: 20200726
  10. ENOXAPARIN 150 MG X 3 DDOSE, THEN 200 MG SQ BID [Concomitant]
     Dates: start: 20200714, end: 20200731
  11. FAMOTIDINE 20 MG IV/PO RENALLY DOSED [Concomitant]
     Dates: start: 20200714, end: 20200731
  12. REMDESIVIR. [Suspect]
     Active Substance: REMDESIVIR
     Indication: COVID-19 PNEUMONIA
     Route: 042
     Dates: start: 20200714, end: 20200718
  13. CLOPIDOGREL 75 MG PO ONCE DAILY [Concomitant]
     Dates: start: 20200728, end: 20200731
  14. ASA 325 MG X1, THEN 81 MG PO ONCE DAILY [Concomitant]
     Dates: start: 20200728, end: 20200731
  15. VANCOMYCIN PER PROTOCOL [Concomitant]
     Dates: start: 20200723, end: 20200729

REACTIONS (27)
  - Blood calcium decreased [None]
  - White blood cell count increased [None]
  - Lymphocyte count increased [None]
  - Monocyte percentage decreased [None]
  - Basophil percentage decreased [None]
  - Red blood cell count decreased [None]
  - Immature granulocyte count increased [None]
  - Hypoxia [None]
  - PCO2 increased [None]
  - Blood bicarbonate decreased [None]
  - Haemoglobin decreased [None]
  - Mean platelet volume increased [None]
  - Neutrophil percentage increased [None]
  - Blood glucose increased [None]
  - Oxygen saturation decreased [None]
  - Blood phosphorus increased [None]
  - Blood urea increased [None]
  - Blood pH decreased [None]
  - Carbon dioxide decreased [None]
  - Haematocrit decreased [None]
  - Red cell distribution width decreased [None]
  - Blood creatinine increased [None]
  - Mean cell haemoglobin concentration decreased [None]
  - Neutrophil count increased [None]
  - Respiratory acidosis [None]
  - Glomerular filtration rate decreased [None]
  - Eosinophil percentage decreased [None]

NARRATIVE: CASE EVENT DATE: 20200731
